FAERS Safety Report 5121199-8 (Version None)
Quarter: 2006Q4

REPORT INFORMATION
  Report Type: 
  Country: None (occurrence: None)
  Receive Date: 20061002
  Receipt Date: 20060915
  Transmission Date: 20070319
  Serious: Yes (Hospitalization)
  Sender: FDA-Public Use
  Company Number: 20060194

PATIENT
  Age: 51 Year
  Sex: Female
  Weight: 38.5557 kg

DRUGS (2)
  1. VENOFER [Suspect]
     Indication: IRON DEFICIENCY ANAEMIA
     Dosage: SEE IMAGE
     Route: 045
     Dates: start: 20060911, end: 20060911
  2. VENOFER [Suspect]
     Indication: MALABSORPTION
     Dosage: SEE IMAGE
     Route: 045
     Dates: start: 20060911, end: 20060911

REACTIONS (2)
  - HYPOTENSION [None]
  - PERICARDITIS [None]
